FAERS Safety Report 8600150-X (Version None)
Quarter: 2012Q3

REPORT INFORMATION
  Report Type: 
  Country: None (occurrence: None)
  Receive Date: 20120817
  Receipt Date: 20120809
  Transmission Date: 20120928
  Serious: Yes (Life-Threatening, Hospitalization, Congenital Anomaly, Other)
  Sender: FDA-Public Use
  Company Number: DE-RANBAXY-2012RR-59080

PATIENT
  Sex: Male
  Weight: 2 kg

DRUGS (4)
  1. L-THYROX 50 [Concomitant]
     Dosage: 50 UG/DAY; 0.-36.3. GESTATIONAL WEEK
     Route: 064
  2. RAMIPRIL [Suspect]
     Dosage: 5 MG/DAY UNTIL WEEK 12-14 ONLY 2.5 MG/DAY, THEN ELEVATION TO 5 MG/DAY
     Route: 064
  3. VITAVERLAN [Concomitant]
     Dosage: 0.4 MG/DAY; 5.-36.3 GESTATIONAL WEEK
     Route: 064
     Dates: start: 20110829, end: 20120405
  4. NEBIVOLOL HCL [Suspect]
     Dosage: 50 MG/DAY; 0.-36.3. GESTATIONAL WEEK
     Route: 064

REACTIONS (6)
  - CRANIAL SUTURES WIDENING [None]
  - NEONATAL ANURIA [None]
  - RENAL FAILURE ACUTE [None]
  - SMALL FOR DATES BABY [None]
  - RENAL APLASIA [None]
  - EXTREMITY CONTRACTURE [None]
